FAERS Safety Report 8823385 (Version 2)
Quarter: 2012Q4

REPORT INFORMATION
  Report Type: Report from Study
  Country: JP (occurrence: JP)
  Receive Date: 20121003
  Receipt Date: 20121108
  Transmission Date: 20130627
  Serious: Yes (Hospitalization)
  Sender: FDA-Public Use
  Company Number: JP-MERCK-1208JPN011901

PATIENT
  Age: 69 Year
  Sex: Male

DRUGS (7)
  1. COSOPT [Suspect]
     Indication: ANGLE CLOSURE GLAUCOMA
     Dosage: 1 Gtt, bid left eye
     Route: 047
     Dates: start: 20110602, end: 20111206
  2. COSOPT [Suspect]
     Dosage: 1 Gtt, bid right eye
     Route: 047
     Dates: start: 20110701, end: 20111206
  3. TAFLUPROST [Concomitant]
     Indication: GLAUCOMA
     Dosage: 1 Gtt, qd
     Route: 047
     Dates: start: 20120831
  4. BAYASPIRIN [Concomitant]
     Indication: ANGINA PECTORIS
     Dosage: 1 DF, qd
     Route: 048
     Dates: start: 20100105
  5. BASEN [Concomitant]
     Indication: DIABETES MELLITUS
     Dosage: 3 DF, tid
     Route: 048
     Dates: start: 20100105
  6. LIPITOR [Concomitant]
     Indication: HYPERCHOLESTEROLAEMIA
     Dosage: 1 DF, qd
     Route: 048
     Dates: start: 20100105
  7. GLYCORAN [Concomitant]
     Indication: DIABETES MELLITUS
     Dosage: 3 DF, tid
     Route: 048
     Dates: start: 20100105

REACTIONS (2)
  - Visual impairment [Unknown]
  - Drug ineffective [Unknown]
